FAERS Safety Report 4700071-9 (Version None)
Quarter: 2005Q2

REPORT INFORMATION
  Report Type: 
  Country: None (occurrence: None)
  Receive Date: 20050126
  Receipt Date: 20050126
  Transmission Date: 20051028
  Serious: Yes (Other)
  Sender: FDA-Public Use
  Company Number: None

PATIENT
  Age: 51 Year
  Sex: Male
  Weight: 96.6162 kg

DRUGS (1)
  1. ULTRAM [Suspect]
     Indication: FIBROMYALGIA
     Dosage: 50MG 2 TABLETS PO THREE TIMES DAILY
     Route: 048

REACTIONS (1)
  - DRUG INEFFECTIVE [None]
